FAERS Safety Report 7655495-7 (Version None)
Quarter: 2011Q3

REPORT INFORMATION
  Report Type: 
  Country: None (occurrence: None)
  Receive Date: 20110729
  Receipt Date: 20110714
  Transmission Date: 20111222
  Serious: Yes (Life-Threatening, Hospitalization)
  Sender: FDA-Public Use
  Company Number: 2011P1007941

PATIENT
  Age: 57 Year
  Sex: Male

DRUGS (10)
  1. GENTAMICIN [Suspect]
     Indication: PROPHYLAXIS
     Dosage: 120 MG; IV
     Route: 042
  2. LEVOBUPIVACAINE (NO PREF. NAME) [Suspect]
     Indication: NERVE BLOCK
     Dosage: 150 MG
     Dates: start: 20110620
  3. LANSOPRAZOLE [Concomitant]
  4. DEXAMETHASONE [Suspect]
     Indication: PROPHYLAXIS
     Dosage: 8 MG;IV
     Route: 042
  5. PROPOFOL [Suspect]
     Dosage: 200 MG;IV
     Route: 042
     Dates: start: 20110620
  6. VENTOLIN HFA [Concomitant]
  7. PREDNISOLONE [Concomitant]
  8. FENTANYL [Suspect]
     Dosage: 1 MG;IV
     Route: 042
     Dates: start: 20110620
  9. CHLORHEXIDINE GLUCONATE [Suspect]
     Dosage: TOP
     Route: 061
     Dates: start: 20110620
  10. TEICOPLANIN (NO PREF. NAME) [Suspect]
     Indication: PROPHYLAXIS
     Dosage: 400 MG;IV
     Route: 042
     Dates: start: 20110620

REACTIONS (5)
  - ANAPHYLACTIC REACTION [None]
  - TACHYCARDIA [None]
  - ERYTHEMA [None]
  - WHEEZING [None]
  - HYPOTENSION [None]
